FAERS Safety Report 16606288 (Version 1)
Quarter: 2019Q3

REPORT INFORMATION
  Report Type: Spontaneous
  Country: FR (occurrence: FR)
  Receive Date: 20190721
  Receipt Date: 20190721
  Transmission Date: 20191004
  Serious: Yes (Life-Threatening, Other)
  Sender: FDA-Public Use
  Company Number: FR-AMGEN-FRASP2019113377

PATIENT
  Age: 58 Year
  Sex: Male
  Weight: 82 kg

DRUGS (4)
  1. OXALIPLATINE ACCORD [Suspect]
     Active Substance: OXALIPLATIN
     Indication: RECTAL ADENOCARCINOMA
     Dosage: 170 MILLIGRAM, CYCLICAL
     Route: 042
     Dates: start: 20190403
  2. LEVOFOLINATE CALCIUM [Suspect]
     Active Substance: LEVOLEUCOVORIN CALCIUM
     Indication: RECTAL ADENOCARCINOMA
     Dosage: 400 MILLIGRAM, CYCLICAL
     Route: 042
     Dates: start: 20190403
  3. COVERAM [Concomitant]
     Active Substance: AMLODIPINE\PERINDOPRIL
     Indication: HYPERTENSION
     Dosage: 1 DOSAGE FORM, QD
     Route: 048
  4. PANITUMUMAB [Suspect]
     Active Substance: PANITUMUMAB
     Indication: RECTAL ADENOCARCINOMA
     Dosage: 520 MILLIGRAM, CYCLICAL
     Route: 042
     Dates: start: 20190403

REACTIONS (1)
  - Anaphylactic shock [Recovered/Resolved]

NARRATIVE: CASE EVENT DATE: 20190403
